FAERS Safety Report 7633197-0 (Version None)
Quarter: 2011Q3

REPORT INFORMATION
  Report Type: 
  Country: None (occurrence: None)
  Receive Date: 20110725
  Receipt Date: 20110720
  Transmission Date: 20111222
  Serious: Yes (Other)
  Sender: FDA-Public Use
  Company Number: BR-ROCHE-776409

PATIENT
  Sex: Male
  Weight: 68 kg

DRUGS (3)
  1. ISOTRETINOIN [Suspect]
     Route: 048
     Dates: start: 20100701, end: 20110701
  2. CLINDAMYCIN [Suspect]
     Indication: TOXOPLASMOSIS
     Route: 048
     Dates: start: 20110101
  3. DARAPRIM [Suspect]
     Indication: TOXOPLASMOSIS
     Route: 048
     Dates: start: 20110101

REACTIONS (3)
  - TOXOPLASMOSIS [None]
  - HYPOACUSIS [None]
  - HEPATOTOXICITY [None]
